FAERS Safety Report 16698534 (Version 1)
Quarter: 2019Q3

REPORT INFORMATION
  Report Type: Other
  Country: CA (occurrence: CA)
  Receive Date: 20190813
  Receipt Date: 20190813
  Transmission Date: 20191004
  Serious: Yes (Other)
  Sender: FDA-Public Use
  Company Number: CA-PFIZER INC-2019340515

PATIENT
  Age: 74 Year
  Sex: Male

DRUGS (3)
  1. NITROGLYCERIN. [Suspect]
     Active Substance: NITROGLYCERIN
     Indication: AORTIC STENOSIS
     Dosage: UNK
     Route: 060
  2. NITROGLYCERIN. [Suspect]
     Active Substance: NITROGLYCERIN
     Indication: AORTIC STENOSIS
  3. NITROGLYCERIN. [Suspect]
     Active Substance: NITROGLYCERIN
     Indication: OFF LABEL USE
     Dosage: 400 UG/ML, EVERY 1 MINUTE
     Route: 041

REACTIONS (2)
  - Cardiac arrest [Unknown]
  - Hypotension [Unknown]
